FAERS Safety Report 9889976 (Version 1)
Quarter: 2014Q1

REPORT INFORMATION
  Report Type: Spontaneous
  Country: US (occurrence: US)
  Receive Date: 20140212
  Receipt Date: 20140212
  Transmission Date: 20141002
  Serious: No
  Sender: FDA-Public Use
  Company Number: US-BIOGENIDEC-2013BI079914

PATIENT
  Age: 54 Year
  Sex: Female
  Weight: 70 kg

DRUGS (12)
  1. TECFIDERA [Suspect]
     Indication: MULTIPLE SCLEROSIS
     Route: 048
     Dates: start: 201304
  2. TECFIDERA [Suspect]
     Indication: MULTIPLE SCLEROSIS
     Route: 048
     Dates: start: 20130425
  3. NEURONTIN [Concomitant]
     Indication: PRODUCT USED FOR UNKNOWN INDICATION
  4. BACLOFEN [Concomitant]
     Indication: PRODUCT USED FOR UNKNOWN INDICATION
  5. AMPYRA [Concomitant]
     Indication: PRODUCT USED FOR UNKNOWN INDICATION
  6. VESICARE [Concomitant]
     Indication: PRODUCT USED FOR UNKNOWN INDICATION
  7. ZOLOFT [Concomitant]
     Indication: PRODUCT USED FOR UNKNOWN INDICATION
  8. VITAIMN D [Concomitant]
     Indication: PRODUCT USED FOR UNKNOWN INDICATION
  9. VITAMIN B6 [Concomitant]
     Indication: PRODUCT USED FOR UNKNOWN INDICATION
  10. ALEVE [Concomitant]
     Indication: PRODUCT USED FOR UNKNOWN INDICATION
  11. ESTRA/NORETH [Concomitant]
     Indication: PRODUCT USED FOR UNKNOWN INDICATION
  12. LOW DOSE ASA [Concomitant]
     Indication: PRODUCT USED FOR UNKNOWN INDICATION

REACTIONS (4)
  - Eye infection viral [Recovered/Resolved]
  - Erythema [Unknown]
  - Flushing [Unknown]
  - Feeling hot [Unknown]
